FAERS Safety Report 11491871 (Version 1)
Quarter: 2015Q3

REPORT INFORMATION
  Report Type: Spontaneous
  Country: US (occurrence: None)
  Receive Date: 20150910
  Receipt Date: 20150910
  Transmission Date: 20151125
  Serious: No
  Sender: FDA-Public Use
  Company Number: None

PATIENT
  Age: 58 Year
  Sex: Female

DRUGS (1)
  1. NO7 RESTORE AND RENEW DAY SUNSCREEN [Suspect]
     Active Substance: AVOBENZONE\OCTISALATE\OCTOCRYLENE
     Indication: THERAPEUTIC SKIN CARE TOPICAL
     Dates: start: 20150516

REACTIONS (11)
  - Application site pruritus [None]
  - Application site pain [None]
  - Application site swelling [None]
  - Eye swelling [None]
  - Lip pruritus [None]
  - Eye irritation [None]
  - Eye pruritus [None]
  - Lip swelling [None]
  - Application site inflammation [None]
  - Oral discomfort [None]
  - Inappropriate schedule of drug administration [None]

NARRATIVE: CASE EVENT DATE: 20150516
